FAERS Safety Report 6240609-6 (Version None)
Quarter: 2009Q2

REPORT INFORMATION
  Report Type: 
  Country: None (occurrence: None)
  Receive Date: 20090619
  Receipt Date: 20090605
  Transmission Date: 20091009
  Serious: Yes (Hospitalization)
  Sender: FDA-Public Use
  Company Number: 8047460

PATIENT
  Age: 24 Year
  Sex: Male
  Weight: 94 kg

DRUGS (6)
  1. CDP870 [Suspect]
     Indication: CROHN'S DISEASE
     Dates: end: 20090318
  2. PREDNISONE TAB [Concomitant]
  3. FLAGYL [Concomitant]
  4. CIPRO [Concomitant]
  5. PENTASA [Concomitant]
  6. IMODIUM [Concomitant]

REACTIONS (20)
  - ABDOMINAL ABSCESS [None]
  - BASOPHIL COUNT INCREASED [None]
  - BLOOD CHLORIDE DECREASED [None]
  - BLOOD CREATININE INCREASED [None]
  - BLOOD SODIUM DECREASED [None]
  - BLOOD UREA DECREASED [None]
  - CHEST PAIN [None]
  - DEHYDRATION [None]
  - HAEMATOCRIT DECREASED [None]
  - HAEMOGLOBIN DECREASED [None]
  - ILEUS [None]
  - MEAN CELL HAEMOGLOBIN DECREASED [None]
  - MEAN CELL VOLUME DECREASED [None]
  - MONOCYTE COUNT INCREASED [None]
  - NEUTROPHIL COUNT INCREASED [None]
  - PLATELET COUNT INCREASED [None]
  - RED CELL DISTRIBUTION WIDTH INCREASED [None]
  - STAPHYLOCOCCAL INFECTION [None]
  - TACHYCARDIA [None]
  - WOUND DRAINAGE [None]
